FAERS Safety Report 20758499 (Version 1)
Quarter: 2022Q2

REPORT INFORMATION
  Report Type: Spontaneous
  Country: US (occurrence: US)
  Receive Date: 20220427
  Receipt Date: 20220427
  Transmission Date: 20220721
  Serious: Yes (Other)
  Sender: FDA-Public Use
  Company Number: US-ASTELLAS-2022US014096

PATIENT
  Age: 73 Year
  Sex: Male

DRUGS (1)
  1. MYRBETRIQ [Suspect]
     Active Substance: MIRABEGRON
     Indication: Product used for unknown indication
     Route: 065
     Dates: start: 202204

REACTIONS (6)
  - Urinary retention [Unknown]
  - Condition aggravated [Unknown]
  - Dysuria [Unknown]
  - Urine flow decreased [Unknown]
  - Bladder obstruction [Recovered/Resolved]
  - Nocturia [Recovered/Resolved]
